FAERS Safety Report 4677331-3 (Version None)
Quarter: 2005Q2

REPORT INFORMATION
  Report Type: 
  Country: None (occurrence: None)
  Receive Date: 20050525
  Receipt Date: 20050525
  Transmission Date: 20051028
  Serious: No
  Sender: FDA-Public Use
  Company Number: None

PATIENT
  Age: 52 Year
  Sex: Female
  Weight: 82.5547 kg

DRUGS (6)
  1. MOBIC [Suspect]
     Indication: BACK PAIN
     Dosage: 15 MG.  DAILY ORAL
     Route: 048
     Dates: start: 20050329, end: 20050511
  2. MULTI-VITAMIN [Concomitant]
  3. CITRA-CAL [Concomitant]
  4. TYLENOL (CAPLET) [Concomitant]
  5. PAXIL [Concomitant]
  6. PREMARIN [Concomitant]

REACTIONS (3)
  - ALOPECIA AREATA [None]
  - HOT FLUSH [None]
  - INFLUENZA LIKE ILLNESS [None]
